FAERS Safety Report 15700690 (Version 3)
Quarter: 2020Q2

REPORT INFORMATION
  Report Type: Spontaneous
  Country: US (occurrence: US)
  Receive Date: 20181207
  Receipt Date: 20200413
  Transmission Date: 20200713
  Serious: Yes (Other)
  Sender: FDA-Public Use
  Company Number: US-SA-2018SA331190

PATIENT
  Age: 49 Year
  Sex: Female

DRUGS (1)
  1. AUBAGIO [Suspect]
     Active Substance: TERIFLUNOMIDE
     Dosage: 14 MG, QD
     Route: 048
     Dates: start: 20180619

REACTIONS (5)
  - Tremor [Unknown]
  - Band sensation [Unknown]
  - Stress [Unknown]
  - Condition aggravated [Unknown]
  - Alopecia [Unknown]
